FAERS Safety Report 23536708 (Version 2)
Quarter: 2024Q2

REPORT INFORMATION
  Report Type: Spontaneous
  Country: FR (occurrence: FR)
  Receive Date: 20240219
  Receipt Date: 20240416
  Transmission Date: 20240716
  Serious: Yes (Other)
  Sender: FDA-Public Use
  Company Number: FR-PFIZER INC-PV202400012181

PATIENT
  Age: 30 Year
  Sex: Male

DRUGS (11)
  1. HYDROCORTISONE ACETATE [Suspect]
     Active Substance: HYDROCORTISONE ACETATE
     Indication: Non-Hodgkin^s lymphoma
     Route: 065
     Dates: start: 1986
  2. PURINETHOL [Suspect]
     Active Substance: MERCAPTOPURINE
     Indication: Non-Hodgkin^s lymphoma
     Route: 065
     Dates: start: 198604
  3. METHOTREXATE [Suspect]
     Active Substance: METHOTREXATE
     Indication: Non-Hodgkin^s lymphoma
     Route: 065
     Dates: start: 198604
  4. METHOTREXATE [Suspect]
     Active Substance: METHOTREXATE
     Route: 065
  5. ELDISINE [Suspect]
     Active Substance: VINDESINE SULFATE
     Indication: Non-Hodgkin^s lymphoma
     Route: 065
     Dates: start: 198604
  6. CYTARABINE [Suspect]
     Active Substance: CYTARABINE
     Indication: Non-Hodgkin^s lymphoma
     Route: 065
     Dates: start: 1986
  7. CYTARABINE [Suspect]
     Active Substance: CYTARABINE
     Dosage: D2, D3 AND D4
     Route: 042
  8. VINCRISTINE [Suspect]
     Active Substance: VINCRISTINE
     Indication: Non-Hodgkin^s lymphoma
     Dosage: D1
     Route: 042
     Dates: start: 1986
  9. TENIPOSIDE [Suspect]
     Active Substance: TENIPOSIDE
     Indication: Non-Hodgkin^s lymphoma
     Dosage: D1, D2 AND D3
     Route: 042
     Dates: start: 1986
  10. RASBURICASE [Suspect]
     Active Substance: RASBURICASE
     Indication: Non-Hodgkin^s lymphoma
     Route: 042
     Dates: start: 1986
  11. ALIZAPRIDE HYDROCHLORIDE [Suspect]
     Active Substance: ALIZAPRIDE HYDROCHLORIDE
     Indication: Non-Hodgkin^s lymphoma
     Route: 042
     Dates: start: 1986

REACTIONS (1)
  - Linear IgA disease [Recovered/Resolved]
